FAERS Safety Report 15854255 (Version 1)
Quarter: 2019Q1

REPORT INFORMATION
  Report Type: Spontaneous
  Country: US (occurrence: US)
  Receive Date: 20190121
  Receipt Date: 20190121
  Transmission Date: 20190417
  Serious: Yes (Other)
  Sender: FDA-Public Use
  Company Number: None

PATIENT
  Age: 9 Year
  Sex: Male
  Weight: 51.75 kg

DRUGS (4)
  1. FLOVENT [Concomitant]
     Active Substance: FLUTICASONE PROPIONATE
  2. ALBUTEROL. [Concomitant]
     Active Substance: ALBUTEROL
  3. MONTELUKAST SODIUM. [Suspect]
     Active Substance: MONTELUKAST SODIUM
     Indication: ASTHMA PROPHYLAXIS
     Dosage: ?          QUANTITY:1 TABLET(S);?
     Route: 048
     Dates: start: 20181101, end: 20190112
  4. MOTRIN [Concomitant]
     Active Substance: IBUPROFEN

REACTIONS (6)
  - Thinking abnormal [None]
  - Hallucination, visual [None]
  - Hallucination, auditory [None]
  - Crying [None]
  - Insomnia [None]
  - Fear [None]

NARRATIVE: CASE EVENT DATE: 20190108
